FAERS Safety Report 10380138 (Version 1)
Quarter: 2014Q3

REPORT INFORMATION
  Report Type: Spontaneous
  Country: US (occurrence: US)
  Receive Date: 20140813
  Receipt Date: 20140813
  Transmission Date: 20150326
  Serious: No
  Sender: FDA-Public Use
  Company Number: US-AMGEN INC.-USASP2014060833

PATIENT
  Age: 63 Year
  Sex: Male

DRUGS (1)
  1. ENBREL [Suspect]
     Active Substance: ETANERCEPT
     Indication: ANKYLOSING SPONDYLITIS
     Dosage: UNK MG, QWK
     Route: 065
     Dates: start: 20140515

REACTIONS (5)
  - Pain [Not Recovered/Not Resolved]
  - Arthralgia [Not Recovered/Not Resolved]
  - Drug effect incomplete [Not Recovered/Not Resolved]
  - Sciatica [Not Recovered/Not Resolved]
  - Pain in extremity [Not Recovered/Not Resolved]

NARRATIVE: CASE EVENT DATE: 20140515
